FAERS Safety Report 6858978-2 (Version None)
Quarter: 2010Q3

REPORT INFORMATION
  Report Type: 
  Country: None (occurrence: None)
  Receive Date: 20100719
  Receipt Date: 20080215
  Transmission Date: 20110219
  Serious: No
  Sender: FDA-Public Use
  Company Number: US-PFIZER INC-2008016167

PATIENT
  Weight: 88.6 kg

DRUGS (10)
  1. CHANTIX [Suspect]
     Indication: SMOKING CESSATION THERAPY
     Dates: start: 20080201
  2. TARKA [Concomitant]
  3. PROTONIX [Concomitant]
  4. ACETYLSALICYLIC ACID [Concomitant]
  5. XANAX [Concomitant]
  6. ADVAIR DISKUS 100/50 [Concomitant]
  7. ALBUTEROL [Concomitant]
  8. VYTORIN [Concomitant]
  9. PERCOCET [Concomitant]
  10. HYALGAN [Concomitant]

REACTIONS (2)
  - ABNORMAL DREAMS [None]
  - MOOD SWINGS [None]
